FAERS Safety Report 22529515 (Version 1)
Quarter: 2023Q2

REPORT INFORMATION
  Report Type: Report from Study
  Country: CA (occurrence: CA)
  Receive Date: 20230607
  Receipt Date: 20230607
  Transmission Date: 20230721
  Serious: Yes (Hospitalization, Other)
  Sender: FDA-Public Use
  Company Number: CA-JNJFOC-20220942913

PATIENT
  Age: 35 Year
  Sex: Female
  Weight: 99 kg

DRUGS (1)
  1. REMICADE [Suspect]
     Active Substance: INFLIXIMAB
     Indication: Crohn^s disease
     Dosage: PATIENT RECEIVED INFUSION ON 23-MAR-2023, EXPIRY DATE : AUG-2025?PATIENT RECEIVED 20TH DOSE OF INFLI
     Route: 041
     Dates: start: 20200813

REACTIONS (5)
  - Beta haemolytic streptococcal infection [Unknown]
  - Exposure during pregnancy [Recovered/Resolved]
  - General physical health deterioration [Unknown]
  - Abdominal pain [Unknown]
  - Diarrhoea [Unknown]

NARRATIVE: CASE EVENT DATE: 20220101
